FAERS Safety Report 23768896 (Version 2)
Quarter: 2024Q2

REPORT INFORMATION
  Report Type: Spontaneous
  Country: US (occurrence: US)
  Receive Date: 20240422
  Receipt Date: 20240523
  Transmission Date: 20240716
  Serious: No
  Sender: FDA-Public Use
  Company Number: US-PFIZER INC-202400080994

PATIENT
  Age: 71 Year
  Sex: Female

DRUGS (2)
  1. SOMATROPIN [Suspect]
     Active Substance: SOMATROPIN
     Dosage: 0.2 MG
  2. SOMATROPIN [Suspect]
     Active Substance: SOMATROPIN
     Dosage: 1.2MG INJECTION DAILY

REACTIONS (1)
  - Asthenia [Unknown]
